FAERS Safety Report 6901856-0 (Version None)
Quarter: 2010Q3

REPORT INFORMATION
  Report Type: 
  Country: None (occurrence: None)
  Receive Date: 20100803
  Receipt Date: 20080325
  Transmission Date: 20110219
  Serious: No
  Sender: FDA-Public Use
  Company Number: US-PFIZER INC-2008026740

PATIENT
  Sex: Female
  Weight: 88.181 kg

DRUGS (5)
  1. LYRICA [Suspect]
     Indication: FIBROMYALGIA
     Route: 048
     Dates: start: 20071201
  2. ATIVAN [Concomitant]
  3. LEXAPRO [Concomitant]
  4. ZETIA [Concomitant]
  5. TRICOR [Concomitant]

REACTIONS (4)
  - ALOPECIA [None]
  - DIZZINESS [None]
  - FLATULENCE [None]
  - WEIGHT INCREASED [None]
